FAERS Safety Report 8690966 (Version 3)
Quarter: 2013Q4

REPORT INFORMATION
  Report Type: Spontaneous
  Country: US (occurrence: US)
  Receive Date: 20120730
  Receipt Date: 20131101
  Transmission Date: 20140711
  Serious: No
  Sender: FDA-Public Use
  Company Number: US-009507513-1207USA009140

PATIENT
  Age: 38 Year
  Sex: Female
  Weight: 66.21 kg

DRUGS (1)
  1. NEXPLANON [Suspect]
     Indication: CONTRACEPTION
     Dosage: 68 MG/ ONE IMPLANT
     Route: 059
     Dates: start: 20120717

REACTIONS (2)
  - Device difficult to use [Unknown]
  - No adverse event [Unknown]
